FAERS Safety Report 19717716 (Version 1)
Quarter: 2021Q3

REPORT INFORMATION
  Report Type: Spontaneous
  Country: US (occurrence: US)
  Receive Date: 20210819
  Receipt Date: 20210819
  Transmission Date: 20211014
  Serious: Yes (Other)
  Sender: FDA-Public Use
  Company Number: US-LUPIN PHARMACEUTICALS INC.-2021-14931

PATIENT
  Age: 51 Year
  Sex: Female

DRUGS (5)
  1. GABAPENTIN TABLET [Suspect]
     Active Substance: GABAPENTIN
     Dosage: 1 DOSAGE FORM, BID (1 TAB AT NIGHT AND 1 TAB IN MORNING FOR 4 DAYS)
     Route: 065
  2. GABAPENTIN TABLET [Suspect]
     Active Substance: GABAPENTIN
     Dosage: 300 MILLIGRAM
     Route: 065
  3. GABAPENTIN TABLET [Suspect]
     Active Substance: GABAPENTIN
     Dosage: 3 DOSAGE FORM (2 TABS AT NIGHT AND 1 TAB IN THE MORNING AND 1 TAB AT LUNCH)
     Route: 065
  4. GABAPENTIN TABLET [Suspect]
     Active Substance: GABAPENTIN
     Indication: TRIGEMINAL NEURALGIA
     Dosage: 1 DOSAGE FORM, QD (1 TAB AT NIGHT FOR 4 DAYS)
     Route: 065
  5. GABAPENTIN TABLET [Suspect]
     Active Substance: GABAPENTIN
     Dosage: 4 DOSAGE FORM (2 TABS AT NIGHT AND 1 TAB IN THE MORNING AND 1 TAB AT LUNCH)
     Route: 065

REACTIONS (4)
  - Panic attack [Unknown]
  - Muscular weakness [Unknown]
  - Anxiety [Unknown]
  - Tremor [Unknown]
